FAERS Safety Report 20053205 (Version 1)
Quarter: 2021Q4

REPORT INFORMATION
  Report Type: Spontaneous
  Country: US (occurrence: None)
  Receive Date: 20211109
  Receipt Date: 20211109
  Transmission Date: 20220303
  Serious: Yes (Death)
  Sender: FDA-Public Use
  Company Number: None

PATIENT
  Sex: Female

DRUGS (20)
  1. MEKINIST [Suspect]
     Active Substance: TRAMETINIB DIMETHYL SULFOXIDE
     Indication: Lung neoplasm malignant
     Dosage: TAKE 1 TABLET BY MOUTH EVERY DAY
     Route: 048
     Dates: start: 20210720
  2. AMLODIPINE [Concomitant]
     Active Substance: AMLODIPINE BESYLATE
  3. ASPIRIN [Concomitant]
     Active Substance: ASPIRIN
  4. ATACAND [Concomitant]
     Active Substance: CANDESARTAN CILEXETIL
  5. ATENOLOL [Concomitant]
     Active Substance: ATENOLOL
  6. ATORVASTATIN [Concomitant]
     Active Substance: ATORVASTATIN
  7. COLESTIPOL [Concomitant]
     Active Substance: COLESTIPOL
  8. FIBERCON [Concomitant]
     Active Substance: CALCIUM POLYCARBOPHIL
  9. FLUBLOK QUAD [Concomitant]
  10. HYDROCHLOROTHIAZIDE [Concomitant]
     Active Substance: HYDROCHLOROTHIAZIDE
  11. IBRANCE [Concomitant]
     Active Substance: PALBOCICLIB
  12. LANSOPRAZOLE [Concomitant]
     Active Substance: LANSOPRAZOLE
  13. LETROZOLE [Concomitant]
     Active Substance: LETROZOLE
  14. LOVAZA [Concomitant]
     Active Substance: OMEGA-3-ACID ETHYL ESTERS
  15. METFORMIN [Concomitant]
     Active Substance: METFORMIN HYDROCHLORIDE
  16. MULTIVITAMIN [Concomitant]
  17. NOVOLOG [Concomitant]
  18. TAFINLAR [Concomitant]
     Active Substance: DABRAFENIB MESYLATE
  19. TRAMADOL HCL [Concomitant]
  20. ZOFRAN [Concomitant]
     Active Substance: ONDANSETRON HYDROCHLORIDE

REACTIONS (1)
  - Death [None]
